FAERS Safety Report 24878598 (Version 1)
Quarter: 2025Q1

REPORT INFORMATION
  Report Type: Report from Study
  Country: US (occurrence: US)
  Receive Date: 20250123
  Receipt Date: 20250123
  Transmission Date: 20250408
  Serious: Yes (Other)
  Sender: TAKEDA
  Company Number: US-TAKEDA-2024TUS128116

PATIENT
  Age: 46 Year
  Sex: Female
  Weight: 72.56 kg

DRUGS (15)
  1. HUMAN IMMUNOGLOBULIN G [Suspect]
     Active Substance: HUMAN IMMUNOGLOBULIN G
     Indication: Immunodeficiency common variable
     Dosage: 45 GRAM, Q4WEEKS
     Dates: start: 20230523
  2. HUMAN IMMUNOGLOBULIN G [Suspect]
     Active Substance: HUMAN IMMUNOGLOBULIN G
  3. EPINEPHRINE [Concomitant]
     Active Substance: EPINEPHRINE
  4. ACETAMINOPHEN [Concomitant]
     Active Substance: ACETAMINOPHEN
  5. VALACYCLOVIR [Concomitant]
     Active Substance: VALACYCLOVIR HYDROCHLORIDE
  6. OMEPRAZOLE [Concomitant]
     Active Substance: OMEPRAZOLE
  7. HUMALOG [Concomitant]
     Active Substance: INSULIN LISPRO
  8. ZOLOFT [Concomitant]
     Active Substance: SERTRALINE HYDROCHLORIDE
  9. SYNTHROID [Concomitant]
     Active Substance: LEVOTHYROXINE SODIUM
  10. PREDNISONE [Concomitant]
     Active Substance: PREDNISONE
  11. SODIUM CHLORIDE [Concomitant]
     Active Substance: SODIUM CHLORIDE
  12. LORAZEPAM [Concomitant]
     Active Substance: LORAZEPAM
  13. HYDROXYCHLOROQUINE SULFATE [Concomitant]
     Active Substance: HYDROXYCHLOROQUINE SULFATE
  14. LIDOCAINE [Concomitant]
     Active Substance: LIDOCAINE
  15. CETIRIZINE [Concomitant]
     Active Substance: CETIRIZINE HYDROCHLORIDE

REACTIONS (3)
  - Pneumonia [Unknown]
  - COVID-19 [Unknown]
  - Sinusitis [Unknown]

NARRATIVE: CASE EVENT DATE: 20241212
